FAERS Safety Report 16136277 (Version 3)
Quarter: 2019Q2

REPORT INFORMATION
  Report Type: Spontaneous
  Country: DE (occurrence: DE)
  Receive Date: 20190331
  Receipt Date: 20190515
  Transmission Date: 20190711
  Serious: Yes (Hospitalization, Other)
  Sender: FDA-Public Use
  Company Number: DE-ALEXION PHARMACEUTICALS INC.-A201904711

PATIENT
  Age: 74 Year
  Sex: Male
  Weight: 52.6 kg

DRUGS (17)
  1. SPIRONOLACTONE. [Concomitant]
     Active Substance: SPIRONOLACTONE
     Indication: PRODUCT USED FOR UNKNOWN INDICATION
     Dosage: 50 MG, 1 TAB IN MORNING, HALF TAB IN MID DAY
     Route: 065
  2. TOREM                              /01036501/ [Concomitant]
     Active Substance: TORSEMIDE
     Indication: PRODUCT USED FOR UNKNOWN INDICATION
     Dosage: 10 MG, HALF TAB, QD
     Route: 065
  3. PENICILLIN-V                       /00001801/ [Concomitant]
     Active Substance: PENICILLIN V
     Indication: PRODUCT USED FOR UNKNOWN INDICATION
     Dosage: 1500000 IU, 9:00 A.M., 9:00 P.M. 1 TABLET
     Route: 065
  4. TAMSULOSIN RATIOPHARM [Concomitant]
     Indication: PRODUCT USED FOR UNKNOWN INDICATION
     Dosage: 0.4 MG, QHS
     Route: 065
  5. SOLIRIS [Suspect]
     Active Substance: ECULIZUMAB
     Dosage: UNK
     Route: 065
     Dates: start: 201901
  6. CHOLECALCIFEROL [Concomitant]
     Active Substance: CHOLECALCIFEROL
     Indication: PRODUCT USED FOR UNKNOWN INDICATION
     Dosage: 880 IU, QD
     Route: 065
  7. KALYMIN                            /00221802/ [Concomitant]
     Active Substance: PYRIDOSTIGMINE BROMIDE
     Dosage: 60 MG, 7:00 A.M., 10:00 A.M., 1:00 P.M., 4:00 P.M., 7:00 P.M. 1 TABLET
     Route: 065
  8. RIOPAN                             /00141701/ [Concomitant]
     Active Substance: MAGALDRATE
     Indication: PRODUCT USED FOR UNKNOWN INDICATION
     Dosage: 1600 MG, PRN
     Route: 065
  9. CALCIUM CARBONATE. [Concomitant]
     Active Substance: CALCIUM CARBONATE
     Indication: PRODUCT USED FOR UNKNOWN INDICATION
     Dosage: 2500 MG, QD
     Route: 065
  10. DEKRISTOL [Concomitant]
     Active Substance: CHOLECALCIFEROL
     Indication: PRODUCT USED FOR UNKNOWN INDICATION
     Dosage: 400 IU, 2 TABLETS IN THE MORNING
  11. PANTOPRAZOLE [Concomitant]
     Active Substance: PANTOPRAZOLE
     Indication: PRODUCT USED FOR UNKNOWN INDICATION
     Dosage: 40 MG, QD
     Route: 065
  12. SOLIRIS [Suspect]
     Active Substance: ECULIZUMAB
     Indication: MYASTHENIA GRAVIS
     Dosage: 300 MG, UNK
     Route: 042
  13. KALYMIN                            /00221802/ [Concomitant]
     Active Substance: PYRIDOSTIGMINE BROMIDE
     Indication: PRODUCT USED FOR UNKNOWN INDICATION
     Dosage: 180 MG, BID
     Route: 065
  14. LIXIANA [Concomitant]
     Active Substance: EDOXABAN TOSYLATE
     Indication: PRODUCT USED FOR UNKNOWN INDICATION
     Dosage: 30 MG, QD
     Route: 065
  15. VITAMIN B DUO [Concomitant]
     Indication: PRODUCT USED FOR UNKNOWN INDICATION
     Dosage: 100 MG/100 MG, QD
     Route: 065
  16. BUDESONIDE. [Concomitant]
     Active Substance: BUDESONIDE
     Indication: PRODUCT USED FOR UNKNOWN INDICATION
     Dosage: 9 MG, QD
     Route: 065
  17. VALERIAN ROOT                      /01561603/ [Concomitant]
     Active Substance: VALERIAN
     Indication: PRODUCT USED FOR UNKNOWN INDICATION
     Dosage: 450 MG, 2 TABLETS AT NIGHT, PRN
     Route: 065

REACTIONS (21)
  - Cholinergic syndrome [Recovered/Resolved]
  - Angiotensin converting enzyme increased [Unknown]
  - Albumin urine present [Unknown]
  - Urine protein/creatinine ratio increased [Unknown]
  - Vitamin B12 increased [Unknown]
  - C-reactive protein increased [Unknown]
  - High density lipoprotein decreased [Unknown]
  - Blood sodium decreased [Unknown]
  - Blood phosphorus decreased [Unknown]
  - Protein urine present [Unknown]
  - Monocyte count decreased [Unknown]
  - Myasthenia gravis crisis [Recovered/Resolved]
  - Cytokine abnormal [Unknown]
  - Nitrite urine present [Unknown]
  - Blood sodium increased [Unknown]
  - Urine albumin/creatinine ratio increased [Unknown]
  - Haematocrit decreased [Unknown]
  - Haemoglobin decreased [Unknown]
  - Serum ferritin increased [Unknown]
  - Neutrophil count increased [Unknown]
  - Lymphocyte count decreased [Unknown]

NARRATIVE: CASE EVENT DATE: 20190122
